FAERS Safety Report 7531820-2 (Version None)
Quarter: 2011Q2

REPORT INFORMATION
  Report Type: 
  Country: None (occurrence: None)
  Receive Date: 20110607
  Receipt Date: 20110607
  Transmission Date: 20111010
  Serious: Yes (Hospitalization)
  Sender: FDA-Public Use
  Company Number: None

PATIENT
  Sex: Female
  Weight: 98.9 kg

DRUGS (2)
  1. TAXOL [Suspect]
     Dosage: 350 MG
  2. CARBOPLATIN [Suspect]
     Dosage: 906 MG

REACTIONS (5)
  - GAIT DISTURBANCE [None]
  - HYPOTENSION [None]
  - ELECTROLYTE IMBALANCE [None]
  - DIARRHOEA [None]
  - DEHYDRATION [None]
